APPROVED DRUG PRODUCT: FLUMADINE
Active Ingredient: RIMANTADINE HYDROCHLORIDE
Strength: 100MG **Federal Register determination that product was not discontinued or withdrawn for safety or effectiveness reasons**
Dosage Form/Route: TABLET;ORAL
Application: N019649 | Product #001
Applicant: SUN PHARMACEUTICAL INDUSTRIES INC
Approved: Sep 17, 1993 | RLD: Yes | RS: No | Type: DISCN